FAERS Safety Report 5252294-0 (Version None)
Quarter: 2007Q1

REPORT INFORMATION
  Report Type: 
  Country: None (occurrence: None)
  Receive Date: 20070301
  Receipt Date: 20060112
  Transmission Date: 20070707
  Serious: No
  Sender: FDA-Public Use
  Company Number: US-BRISTOL-MYERS SQUIBB COMPANY-13246111

PATIENT
  Age: 45 Year
  Sex: Female

DRUGS (6)
  1. TAXOL [Suspect]
     Indication: UTERINE CANCER
     Route: 042
     Dates: start: 20051101
  2. CARBOPLATIN [Suspect]
     Indication: UTERINE CANCER
     Route: 042
     Dates: start: 20051101
  3. DEXAMETHASONE [Concomitant]
  4. DIPHENHYDRAMINE HCL [Concomitant]
  5. SYNTHROID [Concomitant]
     Indication: HYPOTHYROIDISM
  6. KYTRIL [Concomitant]

REACTIONS (1)
  - HYPOTHYROIDISM [None]
